FAERS Safety Report 9749529 (Version 1)
Quarter: 2013Q4

REPORT INFORMATION
  Report Type: Spontaneous
  Country: US (occurrence: US)
  Receive Date: 20131212
  Receipt Date: 20131212
  Transmission Date: 20140711
  Serious: No
  Sender: FDA-Public Use
  Company Number: US-VERTEX PHARMACEUTICALS INC-2013-011590

PATIENT
  Age: 50 Year
  Sex: Male
  Weight: 102.4 kg

DRUGS (6)
  1. INCIVEK [Suspect]
     Indication: HEPATITIS C
     Dosage: 2 DF, TID
     Route: 048
     Dates: start: 2013
  2. PEGINTERFERON [Suspect]
     Indication: HEPATITIS C
     Dosage: 180 ?G, QW
     Route: 058
     Dates: start: 2013
  3. PEGINTERFERON [Suspect]
     Dosage: 135 ?G, QW
     Route: 058
     Dates: start: 2013
  4. RIBAVIRIN [Suspect]
     Indication: HEPATITIS C
     Dosage: 3 DF, BID
     Route: 048
     Dates: start: 2013
  5. RIBAVIRIN [Suspect]
     Dosage: 2 DF, BID
     Route: 048
     Dates: start: 2013
  6. OTHER THERAPEUTIC PRODUCTS [Concomitant]
     Indication: ANORECTAL DISCOMFORT

REACTIONS (3)
  - Anaemia [Unknown]
  - Diarrhoea [Recovered/Resolved]
  - Vomiting [Recovered/Resolved]
